FAERS Safety Report 21854475 (Version 1)
Quarter: 2023Q1

REPORT INFORMATION
  Report Type: Report from Study
  Country: US (occurrence: US)
  Receive Date: 20230112
  Receipt Date: 20230112
  Transmission Date: 20230418
  Serious: No
  Sender: FDA-Public Use
  Company Number: US-ABBVIE-4226479

PATIENT
  Sex: Female
  Weight: 68.038 kg

DRUGS (11)
  1. SYNTHROID [Suspect]
     Active Substance: LEVOTHYROXINE SODIUM
     Indication: Autoimmune thyroiditis
     Dosage: THERAPY START 30 YEARS AGO
     Route: 048
  2. VOLTAREN [Concomitant]
     Active Substance: DICLOFENAC SODIUM
     Indication: Pain
  3. TRAMADOL [Concomitant]
     Active Substance: TRAMADOL
     Indication: Pain
  4. NIACIN [Concomitant]
     Active Substance: NIACIN
     Indication: Product used for unknown indication
  5. PENNSAID [Concomitant]
     Active Substance: DICLOFENAC SODIUM
     Indication: Pain
  6. XANAX [Concomitant]
     Active Substance: ALPRAZOLAM
     Indication: Anxiety
  7. IMITREX [Concomitant]
     Active Substance: SUMATRIPTAN SUCCINATE
     Indication: Headache
  8. COENZYME Q10 [Concomitant]
     Active Substance: DIETARY SUPPLEMENT\UBIDECARENONE
     Indication: Arthropathy
  9. PRAVASTATIN [Concomitant]
     Active Substance: PRAVASTATIN
     Indication: Blood cholesterol
  10. FLONASE [Concomitant]
     Active Substance: FLUTICASONE PROPIONATE
     Indication: Hypersensitivity
  11. FLEXERIL [Concomitant]
     Active Substance: CYCLOBENZAPRINE HYDROCHLORIDE
     Indication: Product used for unknown indication

REACTIONS (3)
  - Arthritis [Unknown]
  - Foot deformity [Not Recovered/Not Resolved]
  - Migraine [Recovering/Resolving]
